FAERS Safety Report 5769415-3 (Version None)
Quarter: 2008Q2

REPORT INFORMATION
  Report Type: 
  Country: None (occurrence: None)
  Receive Date: 20080612
  Receipt Date: 20080328
  Transmission Date: 20081010
  Serious: No
  Sender: FDA-Public Use
  Company Number: US-ABBOTT-08P-163-0444421-00

PATIENT
  Sex: Female
  Weight: 88.076 kg

DRUGS (13)
  1. HUMIRA [Suspect]
     Indication: RHEUMATOID ARTHRITIS
     Route: 058
     Dates: start: 20050505
  2. HUMIRA [Suspect]
     Route: 058
     Dates: start: 20080331
  3. PANTOPRAZOLE [Concomitant]
     Indication: PROPHYLAXIS
     Route: 048
  4. PANTOPRAZOLE [Concomitant]
     Indication: GASTRIC DISORDER
  5. PREGABALIN [Concomitant]
     Indication: FIBROMYALGIA
     Route: 048
  6. TRAZODONE HCL [Concomitant]
     Indication: INSOMNIA
     Route: 048
  7. PROPACET 100 [Concomitant]
     Indication: RHEUMATOID ARTHRITIS
     Route: 048
  8. PROPACET 100 [Concomitant]
     Indication: PAIN
  9. FISH OIL [Concomitant]
     Indication: MINERAL SUPPLEMENTATION
     Route: 048
  10. ROSUVASTATIN [Concomitant]
     Indication: BLOOD CHOLESTEROL ABNORMAL
     Route: 048
  11. ESTER C [Concomitant]
     Indication: MINERAL SUPPLEMENTATION
     Route: 048
  12. CYANOCOBALAMIN [Concomitant]
     Indication: VITAMIN SUPPLEMENTATION
     Route: 048
  13. OLMESARTAN MEDOXOMIL [Concomitant]
     Indication: HYPERTENSION
     Route: 048

REACTIONS (3)
  - BRONCHITIS [None]
  - HYPERTHYROIDISM [None]
  - STOMATITIS [None]
